FAERS Safety Report 24161974 (Version 1)
Quarter: 2024Q3

REPORT INFORMATION
  Report Type: Spontaneous
  Country: DE (occurrence: DE)
  Receive Date: 20240801
  Receipt Date: 20240801
  Transmission Date: 20241017
  Serious: Yes (Other)
  Sender: NOVARTIS
  Company Number: DE-002147023-NVSC2024DE155493

PATIENT

DRUGS (2)
  1. DABRAFENIB [Suspect]
     Active Substance: DABRAFENIB
     Indication: Cholangiocarcinoma
     Dosage: UNK
     Route: 065
  2. TRAMETINIB [Suspect]
     Active Substance: TRAMETINIB
     Indication: Cholangiocarcinoma
     Dosage: UNK
     Route: 065

REACTIONS (3)
  - Cholangiocarcinoma [Unknown]
  - Malignant neoplasm progression [Unknown]
  - Off label use [Unknown]
